FAERS Safety Report 4698988-7 (Version None)
Quarter: 2005Q2

REPORT INFORMATION
  Report Type: 
  Country: None (occurrence: None)
  Receive Date: 20050622
  Receipt Date: 20050622
  Transmission Date: 20051028
  Serious: Yes (Hospitalization)
  Sender: FDA-Public Use
  Company Number: None

PATIENT
  Age: 77 Year
  Sex: Male
  Weight: 70.3075 kg

DRUGS (2)
  1. FLUOROURACIL [Suspect]
     Indication: PANCREATIC DISORDER
     Dosage: DAY # 1 + DAY # 8 Q 21 DAYS
     Dates: start: 20050607
  2. OXALIPLATIN 86 MG [Suspect]
     Dosage: DAY # 1 + DAY # 8 Q 21 DAYS
     Dates: start: 20050614

REACTIONS (5)
  - ANAEMIA [None]
  - DUODENAL ULCER [None]
  - GASTRITIS [None]
  - MELAENA [None]
  - THROMBOCYTOPENIA [None]
